FAERS Safety Report 6028254-9 (Version None)
Quarter: 2008Q4

REPORT INFORMATION
  Report Type: 
  Country: None (occurrence: None)
  Receive Date: 20081231
  Receipt Date: 20081231
  Transmission Date: 20090506
  Serious: Yes (Life-Threatening)
  Sender: FDA-Public Use
  Company Number: None

PATIENT
  Age: 62 Year
  Sex: Male
  Weight: 80.5 kg

DRUGS (1)
  1. MORPHINE [Suspect]
     Indication: PAIN
     Dosage: 1 MG PRN IV
     Route: 042
     Dates: start: 20081226, end: 20081227

REACTIONS (3)
  - APNOEA [None]
  - BRADYCARDIA [None]
  - UNRESPONSIVE TO STIMULI [None]
